FAERS Safety Report 14227247 (Version 1)
Quarter: 2017Q4

REPORT INFORMATION
  Report Type: Spontaneous
  Country: US (occurrence: US)
  Receive Date: 20171127
  Receipt Date: 20171127
  Transmission Date: 20180321
  Serious: Yes (Other)
  Sender: FDA-Public Use
  Company Number: US-MYLANLABS-2017M1073349

PATIENT
  Sex: Female

DRUGS (1)
  1. LAMOTRIGINE TABLETS, USP [Suspect]
     Active Substance: LAMOTRIGINE
     Indication: PRODUCT USED FOR UNKNOWN INDICATION
     Dosage: UNK
     Route: 048

REACTIONS (6)
  - Feeling abnormal [Unknown]
  - Poor quality sleep [Unknown]
  - Drug intolerance [Unknown]
  - Allergic reaction to excipient [Unknown]
  - Mental disorder [Unknown]
  - Disturbance in attention [Unknown]
